FAERS Safety Report 22022214 (Version 3)
Quarter: 2023Q1

REPORT INFORMATION
  Report Type: Spontaneous
  Country: US (occurrence: US)
  Receive Date: 20230222
  Receipt Date: 20230314
  Transmission Date: 20230417
  Serious: Yes (Other)
  Sender: FDA-Public Use
  Company Number: US-BAYER-2023A019902

PATIENT
  Age: 12 Year
  Sex: Female

DRUGS (5)
  1. KOGENATE FS [Suspect]
     Active Substance: ANTIHEMOPHILIC FACTOR, HUMAN RECOMBINANT
     Dosage: 3200 IU
     Route: 042
  2. KOGENATE FS [Suspect]
     Active Substance: ANTIHEMOPHILIC FACTOR, HUMAN RECOMBINANT
     Dosage: 1 DF, FOR THE RIGHT KNEE BLEED TREATMENT
     Dates: start: 20230206, end: 20230206
  3. KOGENATE FS [Suspect]
     Active Substance: ANTIHEMOPHILIC FACTOR, HUMAN RECOMBINANT
     Dosage: 1 DF, FOR THE RIGHT KNEE BLEED TREATMENT
     Dates: start: 20230209, end: 20230209
  4. KOGENATE FS [Suspect]
     Active Substance: ANTIHEMOPHILIC FACTOR, HUMAN RECOMBINANT
     Dosage: 1 DF, FOR THE RIGHT KNEE BLEED TREATMENT
     Dates: start: 20230220, end: 20230220
  5. KOGENATE FS [Suspect]
     Active Substance: ANTIHEMOPHILIC FACTOR, HUMAN RECOMBINANT
     Dosage: 1 DF, FOR THE LEFT ANKLE BLEED TREATMENT
     Dates: start: 20230222, end: 20230222

REACTIONS (5)
  - Haemarthrosis [None]
  - Haemarthrosis [None]
  - Traumatic haemorrhage [None]
  - Haemarthrosis [None]
  - Haemarthrosis [None]

NARRATIVE: CASE EVENT DATE: 20230206
